FAERS Safety Report 25828864 (Version 2)
Quarter: 2025Q4

REPORT INFORMATION
  Report Type: Spontaneous
  Country: EU (occurrence: EU)
  Receive Date: 20250922
  Receipt Date: 20251013
  Transmission Date: 20260118
  Serious: Yes (Other)
  Sender: ROCHE
  Company Number: None

PATIENT
  Sex: Female

DRUGS (28)
  1. TRASTUZUMAB [Suspect]
     Active Substance: TRASTUZUMAB
     Indication: Invasive ductal breast carcinoma
     Dosage: UNK
     Route: 065
     Dates: start: 201104, end: 201209
  2. TRASTUZUMAB [Suspect]
     Active Substance: TRASTUZUMAB
     Dosage: UNK
     Route: 065
     Dates: start: 201601, end: 201603
  3. TRASTUZUMAB [Suspect]
     Active Substance: TRASTUZUMAB
     Dosage: UNK
     Route: 065
     Dates: start: 201604
  4. TRASTUZUMAB [Suspect]
     Active Substance: TRASTUZUMAB
     Dosage: UNK
     Route: 065
     Dates: start: 20160704
  5. TRASTUZUMAB [Suspect]
     Active Substance: TRASTUZUMAB
     Dosage: UNK
     Route: 065
     Dates: start: 201607, end: 201609
  6. TRASTUZUMAB [Suspect]
     Active Substance: TRASTUZUMAB
     Dosage: UNK
     Route: 065
     Dates: start: 201701
  7. TRASTUZUMAB [Suspect]
     Active Substance: TRASTUZUMAB
     Dosage: UNK
     Route: 065
     Dates: start: 201811, end: 201901
  8. TRASTUZUMAB [Suspect]
     Active Substance: TRASTUZUMAB
     Dosage: UNK
     Route: 065
     Dates: start: 201903
  9. PERTUZUMAB [Suspect]
     Active Substance: PERTUZUMAB
     Indication: Invasive ductal breast carcinoma
     Dosage: UNK
     Route: 065
     Dates: start: 201604
  10. PERTUZUMAB [Suspect]
     Active Substance: PERTUZUMAB
     Dosage: UNK
     Route: 065
     Dates: start: 20160704
  11. PERTUZUMAB [Suspect]
     Active Substance: PERTUZUMAB
     Dosage: UNK
     Route: 065
     Dates: start: 201607, end: 201609
  12. CAPECITABINE [Suspect]
     Active Substance: CAPECITABINE
     Indication: Invasive ductal breast carcinoma
     Dosage: UNK
     Route: 065
     Dates: start: 201209, end: 201310
  13. CAPECITABINE [Suspect]
     Active Substance: CAPECITABINE
     Dosage: UNK
     Route: 065
     Dates: start: 201802, end: 201810
  14. CAPECITABINE [Suspect]
     Active Substance: CAPECITABINE
     Dosage: UNK
     Route: 065
     Dates: start: 201903
  15. DOXORUBICIN [Suspect]
     Active Substance: DOXORUBICIN
     Indication: Invasive ductal breast carcinoma
     Dosage: UNK
     Route: 065
     Dates: start: 201504, end: 201510
  16. XGEVA [Suspect]
     Active Substance: DENOSUMAB
     Indication: Invasive ductal breast carcinoma
     Dosage: UNK
     Route: 065
     Dates: start: 201604
  17. LAPATINIB [Suspect]
     Active Substance: LAPATINIB
     Indication: Invasive ductal breast carcinoma
     Dosage: UNK
     Route: 065
     Dates: start: 200612, end: 201101
  18. LAPATINIB [Suspect]
     Active Substance: LAPATINIB
     Dosage: UNK
     Route: 065
     Dates: start: 201109, end: 201310
  19. LAPATINIB [Suspect]
     Active Substance: LAPATINIB
     Dosage: UNK
     Route: 065
     Dates: start: 201701
  20. PAMIDRONATE DISODIUM [Suspect]
     Active Substance: PAMIDRONATE DISODIUM
     Indication: Invasive ductal breast carcinoma
     Dosage: UNK
     Route: 065
     Dates: start: 200612, end: 201101
  21. VINORELBINE [Suspect]
     Active Substance: VINORELBINE TARTRATE
     Indication: Invasive ductal breast carcinoma
     Dosage: UNK
     Route: 065
     Dates: start: 201104, end: 201209
  22. CARBOPLATIN [Suspect]
     Active Substance: CARBOPLATIN
     Indication: Invasive ductal breast carcinoma
     Dosage: UNK
     Route: 065
     Dates: start: 201512, end: 201601
  23. CARBOPLATIN [Suspect]
     Active Substance: CARBOPLATIN
     Dosage: UNK
     Route: 065
     Dates: start: 201601, end: 201603
  24. GEMCITABINE [Suspect]
     Active Substance: GEMCITABINE
     Indication: Invasive ductal breast carcinoma
     Dosage: UNK
     Route: 065
     Dates: start: 201512, end: 201601
  25. DOCETAXEL [Suspect]
     Active Substance: DOCETAXEL
     Indication: Invasive ductal breast carcinoma
     Dosage: UNK
     Route: 065
     Dates: start: 201604
  26. DOCETAXEL [Suspect]
     Active Substance: DOCETAXEL
     Dosage: UNK
     Route: 065
     Dates: start: 20160704
  27. PACLITAXEL [Suspect]
     Active Substance: PACLITAXEL
     Indication: Invasive ductal breast carcinoma
     Dosage: UNK
     Route: 065
     Dates: start: 200612, end: 201101
  28. PACLITAXEL [Suspect]
     Active Substance: PACLITAXEL
     Dosage: UNK
     Route: 065
     Dates: start: 201702, end: 201801

REACTIONS (2)
  - Invasive ductal breast carcinoma [Unknown]
  - Malignant neoplasm progression [Unknown]
